FAERS Safety Report 7362604-6 (Version None)
Quarter: 2011Q1

REPORT INFORMATION
  Report Type: 
  Country: None (occurrence: None)
  Receive Date: 20110320
  Receipt Date: 20100621
  Transmission Date: 20110831
  Serious: Yes (Hospitalization)
  Sender: FDA-Public Use
  Company Number: US-BAYER-201014623NA

PATIENT
  Sex: Female
  Weight: 90.703 kg

DRUGS (7)
  1. ACETAMINOPHEN W/ CODEINE [Concomitant]
     Dosage: UNK UNK, Q4HR
     Route: 048
     Dates: start: 20071221
  2. CELEBREX [Concomitant]
     Dosage: 200 MG, UNK
     Dates: start: 20090729
  3. YAZ [Suspect]
     Indication: PRODUCT USED FOR UNKNOWN INDICATION
     Dosage: AS USED DOSE: UNK
     Route: 048
     Dates: start: 20070701, end: 20080101
  4. ZANTAC [Concomitant]
     Indication: GASTROOESOPHAGEAL REFLUX DISEASE
     Dosage: UNK UNK, PRN
  5. SKELAXIN [Concomitant]
     Dosage: 800 MG, UNK
     Route: 048
     Dates: start: 20071109
  6. CYMBALTA [Concomitant]
     Dosage: 30 MG, UNK
  7. DICLOFENAC SODIUM [Concomitant]
     Dosage: 75 MG, QD
     Route: 048
     Dates: start: 20071109

REACTIONS (6)
  - PULMONARY EMBOLISM [None]
  - DYSPNOEA [None]
  - DEEP VEIN THROMBOSIS [None]
  - MENTAL DISORDER [None]
  - OEDEMA PERIPHERAL [None]
  - PAIN [None]
